FAERS Safety Report 7149122-5 (Version None)
Quarter: 2010Q4

REPORT INFORMATION
  Report Type: 
  Country: None (occurrence: None)
  Receive Date: 20101209
  Receipt Date: 20101208
  Transmission Date: 20110411
  Serious: Yes (Other)
  Sender: FDA-Public Use
  Company Number: US-CEPHALON-2010006350

PATIENT
  Sex: Male
  Weight: 91 kg

DRUGS (1)
  1. FENTANYL CITRATE [Suspect]
     Indication: NECK PAIN
     Route: 002
     Dates: start: 20080101

REACTIONS (1)
  - DENTAL CARIES [None]
